FAERS Safety Report 6704133-6 (Version None)
Quarter: 2010Q2

REPORT INFORMATION
  Report Type: 
  Country: None (occurrence: None)
  Receive Date: 20100430
  Receipt Date: 20100422
  Transmission Date: 20101027
  Serious: Yes (Other)
  Sender: FDA-Public Use
  Company Number: US-AMGEN-QUU408067

PATIENT
  Sex: Female
  Weight: 74 kg

DRUGS (5)
  1. NPLATE [Suspect]
     Indication: IDIOPATHIC THROMBOCYTOPENIC PURPURA
     Dates: start: 20090730, end: 20091111
  2. CORTICOSTEROIDS [Concomitant]
  3. IMMU-G [Concomitant]
     Dates: start: 19930101
  4. RITUXIMAB [Concomitant]
     Dates: start: 20021021
  5. CYCLOPHOSPHAMIDE [Concomitant]

REACTIONS (1)
  - THROMBOCYTOPENIA [None]
